FAERS Safety Report 8157867-3 (Version None)
Quarter: 2012Q1

REPORT INFORMATION
  Report Type: 
  Country: None (occurrence: None)
  Receive Date: 20120222
  Receipt Date: 20120213
  Transmission Date: 20120608
  Serious: Yes (Disabling, Other)
  Sender: FDA-Public Use
  Company Number: US-ASTRAZENECA-2012SE05834

PATIENT
  Age: 89 Year
  Sex: Female

DRUGS (2)
  1. NEXIUM [Suspect]
     Route: 048
  2. OMEPRAZOLE [Suspect]
     Route: 048

REACTIONS (6)
  - OESOPHAGEAL INFECTION [None]
  - MACULAR DEGENERATION [None]
  - DYSPHAGIA [None]
  - BLINDNESS [None]
  - CATARACT [None]
  - DRUG INEFFECTIVE [None]
